FAERS Safety Report 22522236 (Version 1)
Quarter: 2023Q2

REPORT INFORMATION
  Report Type: Spontaneous
  Country: US (occurrence: US)
  Receive Date: 20230605
  Receipt Date: 20230605
  Transmission Date: 20230722
  Serious: Yes (Other)
  Sender: FDA-Public Use
  Company Number: US-002147023-NVSC2023US125110

PATIENT
  Age: 14 Year
  Sex: Male

DRUGS (3)
  1. TRAMETINIB [Suspect]
     Active Substance: TRAMETINIB
     Indication: Anaplastic astrocytoma
     Dosage: UNK
     Route: 065
     Dates: start: 201705, end: 201809
  2. TEMOZOLOMIDE [Suspect]
     Active Substance: TEMOZOLOMIDE
     Indication: Anaplastic astrocytoma
     Dosage: UNK
     Route: 065
     Dates: start: 201703, end: 201809
  3. VEMURAFENIB [Suspect]
     Active Substance: VEMURAFENIB
     Indication: Anaplastic astrocytoma
     Dosage: UNK
     Route: 065
     Dates: start: 201703, end: 201809

REACTIONS (3)
  - Anaplastic astrocytoma [Unknown]
  - Malignant neoplasm progression [Unknown]
  - Product use in unapproved indication [Unknown]

NARRATIVE: CASE EVENT DATE: 20180401
